FAERS Safety Report 9397879 (Version 1)
Quarter: 2013Q3

REPORT INFORMATION
  Report Type: Report from Study
  Country: US (occurrence: US)
  Receive Date: 20130712
  Receipt Date: 20130712
  Transmission Date: 20140515
  Serious: Yes (Hospitalization, Other)
  Sender: FDA-Public Use
  Company Number: PHHO2013US008993

PATIENT
  Age: 55 Year
  Sex: Male
  Weight: 96.6 kg

DRUGS (6)
  1. LBH589 [Suspect]
     Indication: B-CELL LYMPHOMA
     Dosage: 20 MG, TIW
     Route: 048
     Dates: start: 20130404
  2. LBH589 [Suspect]
     Dosage: 10 MG, TIW
     Route: 048
     Dates: start: 20130404
  3. AFINITOR [Suspect]
     Indication: B-CELL LYMPHOMA
     Dosage: 10 MG, QD
     Route: 048
     Dates: start: 20130404
  4. AFINITOR [Suspect]
     Dosage: 5 MG, QD
     Route: 048
     Dates: start: 20130404
  5. GLUCOPHAGE [Concomitant]
     Dosage: 500 MG, QD
     Route: 048
  6. POTASSIUM CHLORIDE [Concomitant]
     Dosage: 30 MEQ, TID

REACTIONS (7)
  - Pyrexia [Unknown]
  - Fatigue [Unknown]
  - Cough [Unknown]
  - Thrombocytopenia [Unknown]
  - Dizziness [Unknown]
  - Malaise [Unknown]
  - Dyspnoea exertional [Unknown]
